FAERS Safety Report 8811222 (Version 2)
Quarter: 2012Q4

REPORT INFORMATION
  Report Type: 
  Country: US (occurrence: US)
  Receive Date: 20120927
  Receipt Date: 20121127
  Transmission Date: 20130627
  Serious: Yes (Hospitalization, Other)
  Sender: FDA-Public Use
  Company Number: US-BAYER-2012-098403

PATIENT
  Age: 23 Year
  Sex: Female
  Weight: 98.87 kg

DRUGS (12)
  1. BEYAZ [Suspect]
     Indication: MENSTRUAL CYCLE MANAGEMENT
     Dosage: UNK
     Dates: start: 201104, end: 201203
  2. BEYAZ [Suspect]
     Indication: PREMENSTRUAL SYNDROME
  3. YAZ [Suspect]
     Indication: PREMENSTRUAL SYNDROME
     Dosage: UNK
     Dates: start: 201104, end: 201203
  4. MACROBID [Concomitant]
     Indication: UTI
     Dosage: 100 ( as written), 7 days
     Route: 048
     Dates: start: 20120112, end: 201205
  5. IBUPROFEN [Concomitant]
     Indication: CRAMPS
     Dosage: UNK
     Dates: start: 20120515
  6. FLUCONAZOLE [Concomitant]
     Dosage: 150 mg, UNK
     Dates: start: 20120316
  7. SOMA [Concomitant]
     Indication: MUSCLE RELAXANT
     Dosage: 350 ONE HS
     Route: 048
     Dates: start: 201205
  8. LORTAB [Concomitant]
     Indication: PAIN
     Dosage: UNK
     Route: 048
     Dates: start: 20120515
  9. ACETAMINOPHEN [Concomitant]
     Dosage: 5-500 mg Q 8 hrs
     Route: 048
     Dates: start: 20120515
  10. CELEBREX [Concomitant]
     Dosage: 200 mg, UNK
     Route: 048
     Dates: start: 20120520
  11. SPRINTEC [Concomitant]
  12. LYSINE [Concomitant]
     Indication: IMMUNE ENHANCEMENT THERAPY
     Dosage: 1000 ml, UNK
     Dates: start: 2001

REACTIONS (15)
  - Pulmonary embolism [None]
  - Thrombosis [None]
  - Injury [None]
  - Pain [None]
  - Pain [None]
  - Emotional distress [None]
  - Anhedonia [None]
  - Pain [None]
  - Sleep disorder due to a general medical condition [None]
  - Painful respiration [None]
  - Activities of daily living impaired [None]
  - Fear [None]
  - Stress [None]
  - Anxiety [None]
  - Off label use [None]
